FAERS Safety Report 7381453-6 (Version None)
Quarter: 2011Q1

REPORT INFORMATION
  Report Type: 
  Country: None (occurrence: None)
  Receive Date: 20110329
  Receipt Date: 20110323
  Transmission Date: 20110831
  Serious: Yes (Death, Hospitalization)
  Sender: FDA-Public Use
  Company Number: FR-PFIZER INC-2011064078

PATIENT
  Age: 87 Year
  Sex: Male

DRUGS (7)
  1. ESOMEPRAZOLE [Concomitant]
     Dosage: 40 MG 1X/DAY
  2. CARVEDILOL [Concomitant]
     Dosage: 6.25 MG 1X/DAY
  3. LASIX [Concomitant]
     Indication: CARDIAC FAILURE
     Dosage: UNK
  4. COUMADIN [Concomitant]
     Dosage: 1 MG, 1X/DAY
     Dates: end: 20110121
  5. ZOPICLONE [Concomitant]
     Indication: INSOMNIA
     Dosage: 7.5 MG A DAY, AS NEEDED
  6. ALPRAZOLAM [Concomitant]
     Dosage: 0.25 MG 1X/DAY
  7. ADRIAMYCIN PFS [Suspect]
     Indication: NON-HODGKIN'S LYMPHOMA
     Dosage: UNK
     Route: 042
     Dates: end: 20091001

REACTIONS (5)
  - CARDIAC FAILURE [None]
  - RENAL FAILURE ACUTE [None]
  - HEPATIC FAILURE [None]
  - MULTI-ORGAN FAILURE [None]
  - ATRIAL FIBRILLATION [None]
